FAERS Safety Report 7107515-6 (Version None)
Quarter: 2010Q4

REPORT INFORMATION
  Report Type: 
  Country: None (occurrence: None)
  Receive Date: 20101117
  Receipt Date: 20101103
  Transmission Date: 20110411
  Serious: Yes (Other)
  Sender: FDA-Public Use
  Company Number: IN-RANBAXY-2010RR-38448

PATIENT
  Age: 18 Year
  Sex: Female

DRUGS (1)
  1. OFLOXACIN [Suspect]
     Indication: URINARY TRACT INFECTION
     Route: 048

REACTIONS (1)
  - BORDERLINE LEPROSY [None]
